FAERS Safety Report 6209704-1 (Version None)
Quarter: 2009Q2

REPORT INFORMATION
  Report Type: 
  Country: None (occurrence: None)
  Receive Date: 20090601
  Receipt Date: 20070626
  Transmission Date: 20091009
  Serious: Yes (Hospitalization, Other)
  Sender: FDA-Public Use
  Company Number: US-ASTRAZENECA-2006UW20940

PATIENT
  Age: 18101 Day
  Sex: Female
  Weight: 176 kg

DRUGS (43)
  1. SEROQUEL [Suspect]
     Indication: ANXIETY
     Route: 048
     Dates: start: 20010401, end: 20060601
  2. SEROQUEL [Suspect]
     Indication: DEPRESSION
     Route: 048
     Dates: start: 20010401, end: 20060601
  3. SEROQUEL [Suspect]
     Indication: INSOMNIA
     Route: 048
     Dates: start: 20010401, end: 20060601
  4. SEROQUEL [Suspect]
     Dosage: 25 - 300 MG
     Route: 048
     Dates: start: 20030507
  5. SEROQUEL [Suspect]
     Dosage: 25 - 300 MG
     Route: 048
     Dates: start: 20030507
  6. SEROQUEL [Suspect]
     Dosage: 25 - 300 MG
     Route: 048
     Dates: start: 20030507
  7. CLOZARIL [Concomitant]
  8. GEODON [Concomitant]
  9. RISPERDAL [Concomitant]
  10. THORAZINE [Concomitant]
  11. ZYPREXA [Concomitant]
  12. COREG [Concomitant]
     Route: 048
     Dates: start: 20050929
  13. RITALIN [Concomitant]
  14. LANTUS [Concomitant]
     Indication: DIABETES MELLITUS
     Dosage: 4 UNITS AT BEDTIME
     Route: 058
     Dates: start: 20041022
  15. CELEXA [Concomitant]
     Indication: ANTIDEPRESSANT THERAPY
     Dosage: 20 - 40 MG
     Dates: start: 20041022
  16. ULTRACET [Concomitant]
     Dates: start: 20040419
  17. LIPITOR [Concomitant]
     Indication: HYPERLIPIDAEMIA
     Dosage: 20 - 40 MG
     Route: 048
     Dates: start: 20040622
  18. AVANDIA [Concomitant]
     Indication: DIABETES MELLITUS
     Dosage: 2 - 8 MG
     Route: 048
     Dates: start: 20050307
  19. WELLBUTRIN SR [Concomitant]
     Dates: start: 20050929
  20. BYETTA [Concomitant]
     Dosage: 10 - 50 UG
     Route: 058
     Dates: start: 20051102
  21. KLONOPIN [Concomitant]
     Indication: SLEEP DISORDER
  22. PREDNISOLONE [Concomitant]
     Dosage: 10 MG / 5 MI
     Dates: start: 19930601
  23. PREDNISOLONE [Concomitant]
     Dosage: 1.25 - 1.5 MG
     Route: 048
     Dates: start: 20020113
  24. ESTROPIPATE [Concomitant]
     Dosage: 1.25-1.5 MG
     Route: 048
     Dates: start: 20020113
  25. AMBIEN [Concomitant]
     Indication: INSOMNIA
     Dosage: 5 - 200 MG
     Route: 048
     Dates: start: 19931028
  26. NEURONTIN [Concomitant]
     Dosage: 100 - 800 MG
     Route: 048
     Dates: start: 20040226
  27. FOSAMAX [Concomitant]
     Indication: OSTEOPOROSIS
     Dosage: 10 - 70 MG
     Route: 048
     Dates: start: 19971209
  28. SYNTHROID [Concomitant]
     Indication: HYPERTHYROIDISM
     Route: 048
  29. WARFARIN SODIUM [Concomitant]
     Dosage: 5 - 7.5 MG
     Route: 048
  30. XANAX [Concomitant]
     Indication: ANXIETY
     Dosage: 0.25 - 2 MG
     Route: 048
     Dates: start: 19930315
  31. ATENOLOL [Concomitant]
     Indication: TACHYARRHYTHMIA
     Dosage: 12.5 - 25 MG
     Route: 048
     Dates: start: 20060517
  32. BUSPAR [Concomitant]
     Indication: ANXIETY
     Dates: start: 20000622
  33. METHOTREXATE [Concomitant]
     Dosage: 25 MG / ML
     Route: 030
     Dates: start: 20011101
  34. METHOTREXATE [Concomitant]
     Dosage: 12.5 - 25 MG
  35. REMERON [Concomitant]
  36. METHADONE [Concomitant]
     Indication: BACK PAIN
     Dates: start: 20060428
  37. GLYBURIDE [Concomitant]
     Indication: DIABETES MELLITUS
     Dates: start: 20050310
  38. FLEXERIL [Concomitant]
     Indication: MUSCLE RELAXANT THERAPY
     Dates: start: 19870320
  39. PROPYL-THIOURACIL [Concomitant]
     Indication: HYPERTHYROIDISM
     Dates: start: 20060519
  40. HUMULIN N [Concomitant]
     Dosage: 1000 U ML
     Dates: start: 20050803
  41. IRON [Concomitant]
  42. LORAZEPAM [Concomitant]
     Dates: start: 20050208
  43. ACTOS [Concomitant]
     Indication: DIABETES MELLITUS
     Dosage: 15 - 45 MG
     Dates: start: 20051104

REACTIONS (6)
  - DIABETES MELLITUS [None]
  - DIABETES MELLITUS INADEQUATE CONTROL [None]
  - DIABETIC KETOACIDOSIS [None]
  - DIABETIC NEUROPATHY [None]
  - HYPOGLYCAEMIA [None]
  - INSULIN-REQUIRING TYPE 2 DIABETES MELLITUS [None]
